FAERS Safety Report 19372792 (Version 1)
Quarter: 2021Q2

REPORT INFORMATION
  Report Type: Spontaneous
  Country: US (occurrence: US)
  Receive Date: 20210603
  Receipt Date: 20210603
  Transmission Date: 20210717
  Serious: Yes (Other)
  Sender: FDA-Public Use
  Company Number: None

PATIENT
  Age: 38 Year
  Sex: Female
  Weight: 97.2 kg

DRUGS (6)
  1. METFORMIN 500MG BID [Concomitant]
     Dates: start: 20201125
  2. OXCARBAZEPINE. [Suspect]
     Active Substance: OXCARBAZEPINE
     Indication: BIPOLAR DISORDER
     Dates: start: 20210429, end: 20210527
  3. TRAZODONE 200 MG HS [Concomitant]
     Dates: start: 20200921
  4. LAMOTRAGINE 200 MG HS [Concomitant]
     Dates: start: 20201013
  5. PRAZOSIN 5 MG HS [Concomitant]
     Dates: start: 20201029
  6. COLACE 100 MG HS [Concomitant]
     Dates: start: 20200903

REACTIONS (1)
  - Dystonia [None]

NARRATIVE: CASE EVENT DATE: 20210522
